FAERS Safety Report 5128887-8 (Version None)
Quarter: 2006Q4

REPORT INFORMATION
  Report Type: 
  Country: None (occurrence: None)
  Receive Date: 20061017
  Receipt Date: 20060329
  Transmission Date: 20070319
  Serious: No
  Sender: FDA-Public Use
  Company Number: US-GLAXOSMITHKLINE-A0599539A

PATIENT
  Age: 2 Year
  Sex: Male

DRUGS (2)
  1. CEFTIN [Suspect]
     Indication: EAR INFECTION
     Dosage: 5ML UNKNOWN
     Route: 048
     Dates: start: 20060329, end: 20060329
  2. NO CONCURRENT MEDICATION [Concomitant]

REACTIONS (2)
  - ORAL PRURITUS [None]
  - TONGUE HAEMORRHAGE [None]
